FAERS Safety Report 17705912 (Version 2)
Quarter: 2020Q2

REPORT INFORMATION
  Report Type: Spontaneous
  Country: CN (occurrence: CN)
  Receive Date: 20200424
  Receipt Date: 20200428
  Transmission Date: 20200714
  Serious: Yes (Other)
  Sender: FDA-Public Use
  Company Number: CN-009507513-2004CHN005920

PATIENT
  Age: 91 Year
  Sex: Male
  Weight: 63 kg

DRUGS (2)
  1. TIENAM [Suspect]
     Active Substance: CILASTATIN SODIUM\IMIPENEM
     Indication: PNEUMONIA BACTERIAL
     Dosage: 1 GRAM, Q8H
     Route: 042
     Dates: start: 20200313, end: 20200314
  2. TIENAM [Suspect]
     Active Substance: CILASTATIN SODIUM\IMIPENEM
     Indication: PATHOGEN RESISTANCE

REACTIONS (2)
  - Muscle twitching [Recovering/Resolving]
  - Oculogyric crisis [Recovering/Resolving]

NARRATIVE: CASE EVENT DATE: 20200314
